FAERS Safety Report 9003249 (Version 1)
Quarter: 2013Q1

REPORT INFORMATION
  Report Type: Spontaneous
  Country: US (occurrence: US)
  Receive Date: 20130108
  Receipt Date: 20130108
  Transmission Date: 20140127
  Serious: Yes (Life-Threatening, Hospitalization, Other)
  Sender: FDA-Public Use
  Company Number: US-009507513-1301USA000923

PATIENT
  Age: 50 Year
  Sex: Male

DRUGS (5)
  1. MONTELUKAST SODIUM [Suspect]
     Route: 048
  2. MIOCAMYCIN [Concomitant]
  3. BUDESONIDE [Concomitant]
     Dosage: 200 MCG/TWICE PER DAY/INHALED RESPIRATORY (INHALATION)
  4. FLUTICASONE PROPIONATE [Concomitant]
     Dosage: TWICE PER DAY
  5. SEREVENT [Concomitant]
     Dosage: 100 MCG/TWICE PER DAY/INHALED RESPIRATORY (INHALATION)

REACTIONS (4)
  - Eosinophilia [Unknown]
  - Vasculitis [Unknown]
  - Allergic granulomatous angiitis [Unknown]
  - Bronchospasm [Unknown]
